FAERS Safety Report 23268332 (Version 1)
Quarter: 2023Q4

REPORT INFORMATION
  Report Type: Spontaneous
  Country: FR (occurrence: FR)
  Receive Date: 20231206
  Receipt Date: 20231206
  Transmission Date: 20240110
  Serious: Yes (Death, Life-Threatening)
  Sender: FDA-Public Use
  Company Number: None

PATIENT
  Age: 62 Year
  Sex: Male

DRUGS (15)
  1. ALEVE [Interacting]
     Active Substance: NAPROXEN SODIUM
     Indication: Back pain
     Dosage: 550 MG, QD
     Route: 048
     Dates: start: 20231013
  2. MEDROL [Interacting]
     Active Substance: METHYLPREDNISOLONE
     Indication: Back pain
     Route: 048
     Dates: start: 20231017, end: 20231021
  3. MEDROL [Interacting]
     Active Substance: METHYLPREDNISOLONE
     Indication: Back pain
     Dosage: 16 MG, QD
     Route: 048
     Dates: start: 20231022, end: 20231026
  4. MEDROL [Interacting]
     Active Substance: METHYLPREDNISOLONE
     Indication: Back pain
     Dosage: 48 MG, QD
     Route: 048
     Dates: start: 20231013, end: 20231016
  5. KARDEGIC [Interacting]
     Active Substance: ASPIRIN DL-LYSINE
     Indication: Cardiovascular event prophylaxis
     Route: 048
     Dates: start: 2023
  6. ARIXTRA [Interacting]
     Active Substance: FONDAPARINUX SODIUM
     Indication: Infarction
     Dosage: 1 DF
     Route: 058
     Dates: start: 20231027
  7. DICLOFENAC [Interacting]
     Active Substance: DICLOFENAC
     Indication: Back pain
     Route: 048
     Dates: start: 20231013
  8. TICAGRELOR [Interacting]
     Active Substance: TICAGRELOR
     Indication: Infarction
     Route: 048
     Dates: start: 20231027, end: 20231027
  9. HEPARIN SODIUM [Interacting]
     Active Substance: HEPARIN SODIUM
     Indication: Infarction
     Route: 042
     Dates: start: 20231027
  10. ROSUVASTATIN [Concomitant]
     Active Substance: ROSUVASTATIN
     Dosage: 10 MG, QD
     Route: 048
  11. NITRENDIPINE [Concomitant]
     Active Substance: NITRENDIPINE
     Dosage: 20 MG, QD
     Route: 048
  12. DAPAGLIFLOZIN [Concomitant]
     Active Substance: DAPAGLIFLOZIN
     Dosage: 10 MG, QD
     Route: 048
  13. HYDROCHLOROTHIAZIDE [Concomitant]
     Active Substance: HYDROCHLOROTHIAZIDE
     Dosage: 12.5 MG, QD
     Route: 048
  14. METFORMIN HYDROCHLORIDE\SAXAGLIPTIN [Concomitant]
     Active Substance: METFORMIN HYDROCHLORIDE\SAXAGLIPTIN
     Dosage: 2 DF, QD
     Route: 048
  15. CANDESARTAN CILEXETIL [Concomitant]
     Active Substance: CANDESARTAN CILEXETIL
     Dosage: 32 MG, QD
     Route: 048

REACTIONS (3)
  - Shock haemorrhagic [Fatal]
  - Gastroduodenal ulcer [Fatal]
  - Drug interaction [Fatal]

NARRATIVE: CASE EVENT DATE: 20231027
